FAERS Safety Report 20222838 (Version 4)
Quarter: 2022Q1

REPORT INFORMATION
  Report Type: Spontaneous
  Country: IN (occurrence: IN)
  Receive Date: 20211223
  Receipt Date: 20220329
  Transmission Date: 20220423
  Serious: Yes (Other)
  Sender: FDA-Public Use
  Company Number: IN-PFIZER INC-2020379815

PATIENT
  Age: 55 Year
  Sex: Female
  Weight: 71.9 kg

DRUGS (14)
  1. PALBOCICLIB [Suspect]
     Active Substance: PALBOCICLIB
     Indication: Breast cancer metastatic
     Dosage: 100 MG, 1X/DAY
     Route: 048
     Dates: start: 20191219
  2. PALBOCICLIB [Suspect]
     Active Substance: PALBOCICLIB
     Dosage: 125 MG, CYCLIC (ONCE DAILY FOR 21 DAYS)
     Route: 048
     Dates: start: 202006, end: 2020
  3. PALBOCICLIB [Suspect]
     Active Substance: PALBOCICLIB
     Dosage: 100 MG, CYCLIC (ONCE DAILY FOR 21 DAYS)
     Route: 048
     Dates: start: 2020
  4. PALBOCICLIB [Suspect]
     Active Substance: PALBOCICLIB
     Dosage: 100 MG, CYCLIC (ONCE DAILY FOR 21 DAYS AND 7 DAYS OFF)
     Route: 048
     Dates: start: 20210708
  5. LETROZOLE [Concomitant]
     Active Substance: LETROZOLE
     Dosage: UNK
     Dates: start: 20191228
  6. LETROZOLE [Concomitant]
     Active Substance: LETROZOLE
     Dosage: 2.5 MG, 1X/DAY (OD)
     Route: 048
  7. ZOLDONAT [Concomitant]
     Dosage: UNK
     Dates: start: 20191209
  8. ZOLDONAT [Concomitant]
     Dosage: 4 MG, 1X/DAY  (REPEATED 3 MONTHLY THEREAFTER)
     Dates: start: 20200604
  9. ZOLDONAT [Concomitant]
     Dosage: 4 MG, 1X/DAY (IMMEDIATELY)
     Dates: start: 20200921
  10. ZOLDONAT [Concomitant]
     Dosage: 4 MG
     Dates: start: 20201223
  11. ZOLDONAT [Concomitant]
     Dosage: 4 MG, 1X/DAY
     Dates: start: 20211021
  12. ZOLDONAT [Concomitant]
     Dosage: 4 MG, 1X/DAY
     Dates: start: 20211122
  13. LEVOTHYROXINE [Concomitant]
     Active Substance: LEVOTHYROXINE
     Indication: Hypothyroidism
     Dosage: UNK
  14. UNSPECIFIED INGREDIENT [Concomitant]
     Active Substance: UNSPECIFIED INGREDIENT
     Indication: Hypertension
     Dosage: UNK

REACTIONS (22)
  - Neutropenia [Recovered/Resolved]
  - Carcinoembryonic antigen increased [Unknown]
  - Neoplasm progression [Unknown]
  - Haemoglobin decreased [Not Recovered/Not Resolved]
  - Red blood cell count decreased [Not Recovered/Not Resolved]
  - Productive cough [Not Recovered/Not Resolved]
  - Wheezing [Unknown]
  - White blood cell count decreased [Not Recovered/Not Resolved]
  - Pruritus [Unknown]
  - Carbohydrate antigen 15-3 increased [Unknown]
  - Urinary tract infection [Unknown]
  - Pollakiuria [Unknown]
  - Diarrhoea [Unknown]
  - Abdominal pain [Recovered/Resolved]
  - Blood pressure increased [Not Recovered/Not Resolved]
  - Heart rate increased [Not Recovered/Not Resolved]
  - Urine analysis abnormal [Unknown]
  - Blood urine present [Unknown]
  - Pain in extremity [Unknown]
  - Arthralgia [Unknown]
  - Weight decreased [Unknown]
  - Pain [Unknown]

NARRATIVE: CASE EVENT DATE: 20200116
